FAERS Safety Report 7606971-4 (Version None)
Quarter: 2011Q3

REPORT INFORMATION
  Report Type: 
  Country: None (occurrence: None)
  Receive Date: 20110712
  Receipt Date: 20110712
  Transmission Date: 20111222
  Serious: No
  Sender: FDA-Public Use
  Company Number: None

PATIENT

DRUGS (1)
  1. CETIRIZINE HCL [Suspect]
     Dosage: 10 MG TAB

REACTIONS (5)
  - SOMNOLENCE [None]
  - DRUG TOLERANCE [None]
  - OFF LABEL USE [None]
  - REBOUND EFFECT [None]
  - DRUG EFFECT DECREASED [None]
